FAERS Safety Report 9204027 (Version 1)
Quarter: 2013Q1

REPORT INFORMATION
  Report Type: Spontaneous
  Country: US (occurrence: None)
  Receive Date: 20120709
  Receipt Date: 20120709
  Transmission Date: 20140127
  Serious: No
  Sender: FDA-Public Use
  Company Number: 2012HGS-003479

PATIENT
  Age: 50 Year
  Sex: Female
  Weight: 96.16 kg

DRUGS (6)
  1. BENLYSTA [Suspect]
     Dosage: 1 IN 1 M
     Route: 041
     Dates: start: 20111118
  2. PPLAQUENIL (HYDROXYCHLOROQUINE SULFATE) (HYDROXYCHLOROQUINE SULFATE) [Concomitant]
  3. PERCOCET (OXYCOCET) (PARACETAMOL, OXYCODONE HYDROCHLORIDE) [Concomitant]
  4. HYDROCHLOROTHIAZIDE) (HYDRPCHLOROTHIAZIDE) [Concomitant]
  5. POTASSIUM (POTASSIUM) (POTASSIUM) [Concomitant]
  6. NAPROXEN (NAPORXEN) (NAPROXEN) [Concomitant]

REACTIONS (1)
  - Migraine [None]
